FAERS Safety Report 14388553 (Version 1)
Quarter: 2018Q1

REPORT INFORMATION
  Report Type: Report from Study
  Country: US (occurrence: BR)
  Receive Date: 20180115
  Receipt Date: 20180115
  Transmission Date: 20180509
  Serious: Yes (Other)
  Sender: FDA-Public Use
  Company Number: US-SUNOVION-2018SUN000098

PATIENT
  Age: 66 Year
  Sex: Male

DRUGS (2)
  1. INDACATEROL AND GLYCOPYRROLATE [Suspect]
     Active Substance: GLYCOPYRROLATE\INDACATEROL MALEATE
     Indication: ASTHENIA
     Dosage: 1 DF (110 UG GLYCOPYRRONIUM BROMIDE, 50 UG INDACATEROL), QD
     Route: 055
     Dates: start: 201711
  2. INDACATEROL AND GLYCOPYRROLATE [Suspect]
     Active Substance: GLYCOPYRROLATE\INDACATEROL MALEATE
     Indication: DYSPNOEA
     Dosage: 1 DF (110 UG GLYCOPYRRONIUM BROMIDE, 50 UG INDACATEROL), QD
     Route: 055
     Dates: end: 20171010

REACTIONS (6)
  - Weight decreased [Unknown]
  - Product use in unapproved indication [Unknown]
  - Lip and/or oral cavity cancer [Unknown]
  - Asthenia [Recovering/Resolving]
  - Speech disorder [Recovering/Resolving]
  - Dyspnoea [Recovering/Resolving]

NARRATIVE: CASE EVENT DATE: 201701
